FAERS Safety Report 6859090-9 (Version None)
Quarter: 2010Q3

REPORT INFORMATION
  Report Type: 
  Country: None (occurrence: None)
  Receive Date: 20100719
  Receipt Date: 20080409
  Transmission Date: 20110219
  Serious: No
  Sender: FDA-Public Use
  Company Number: US-PFIZER INC-2008016983

PATIENT
  Sex: Male
  Weight: 65.5 kg

DRUGS (8)
  1. CHANTIX [Suspect]
     Indication: SMOKING CESSATION THERAPY
     Route: 048
     Dates: start: 20080219
  2. AGGRENOX [Concomitant]
     Route: 048
  3. MESALAZINE [Concomitant]
     Route: 048
  4. LIPITOR [Concomitant]
     Route: 048
  5. ENALAPRIL MALEATE [Concomitant]
     Route: 048
  6. ATENOLOL [Concomitant]
     Route: 048
  7. ARICEPT [Concomitant]
     Route: 048
  8. FOLIC ACID [Concomitant]
     Route: 048

REACTIONS (3)
  - ABNORMAL DREAMS [None]
  - DRUG INEFFECTIVE [None]
  - INCORRECT DOSE ADMINISTERED [None]
